FAERS Safety Report 7293023-9 (Version None)
Quarter: 2011Q1

REPORT INFORMATION
  Report Type: 
  Country: None (occurrence: None)
  Receive Date: 20110215
  Receipt Date: 20110201
  Transmission Date: 20110831
  Serious: Yes (Other)
  Sender: FDA-Public Use
  Company Number: US-JNJFOC-20110203944

PATIENT
  Sex: Female

DRUGS (3)
  1. DOXORUBICIN HYDROCHLORIDE [Suspect]
     Indication: NEOPLASM
     Dosage: ON DAY 1, CYCLE 1 (DOSE 1)
     Route: 042
  2. DOCETAXEL [Suspect]
     Indication: NEOPLASM
     Dosage: ON DAY 1,8,15, CYCLE 1 (DOSE 1)
     Route: 042
  3. DEXAMETHASONE [Concomitant]
     Indication: PREMEDICATION
     Route: 065

REACTIONS (3)
  - DYSPNOEA [None]
  - LEUKOCYTOSIS [None]
  - COUGH [None]
